APPROVED DRUG PRODUCT: TENORMIN
Active Ingredient: ATENOLOL
Strength: 50MG
Dosage Form/Route: TABLET;ORAL
Application: N018240 | Product #001 | TE Code: AB
Applicant: TWI PHARMACEUTICALS INC
Approved: Approved Prior to Jan 1, 1982 | RLD: Yes | RS: No | Type: RX